FAERS Safety Report 21001298 (Version 1)
Quarter: 2022Q2

REPORT INFORMATION
  Report Type: Spontaneous
  Country: US (occurrence: US)
  Receive Date: 20220624
  Receipt Date: 20220624
  Transmission Date: 20220721
  Serious: Yes (Hospitalization)
  Sender: FDA-Public Use
  Company Number: US-ABBVIE-22K-163-4443112-00

PATIENT

DRUGS (1)
  1. BERACTANT [Suspect]
     Active Substance: BERACTANT
     Indication: Product used for unknown indication
     Route: 039

REACTIONS (1)
  - Device occlusion [Unknown]
